FAERS Safety Report 19110250 (Version 1)
Quarter: 2021Q2

REPORT INFORMATION
  Report Type: Report from Study
  Country: US (occurrence: US)
  Receive Date: 20210408
  Receipt Date: 20210408
  Transmission Date: 20210717
  Serious: Yes (Death)
  Sender: FDA-Public Use
  Company Number: US-ASTRAZENECA-2021A268429

PATIENT
  Age: 28425 Day
  Sex: Male
  Weight: 102.1 kg

DRUGS (4)
  1. HYDROCHLOROTHIAZIDE. [Concomitant]
     Active Substance: HYDROCHLOROTHIAZIDE
  2. LUPRON [Concomitant]
     Active Substance: LEUPROLIDE ACETATE
  3. TELMISARTAN. [Concomitant]
     Active Substance: TELMISARTAN
  4. CALQUENCE [Suspect]
     Active Substance: ACALABRUTINIB
     Indication: MANTLE CELL LYMPHOMA
     Route: 048
     Dates: start: 20201119, end: 20210331

REACTIONS (1)
  - Death [Fatal]

NARRATIVE: CASE EVENT DATE: 20210331
